FAERS Safety Report 4549583-1 (Version None)
Quarter: 2005Q1

REPORT INFORMATION
  Report Type: 
  Country: None (occurrence: None)
  Receive Date: 20050106
  Receipt Date: 20041227
  Transmission Date: 20050727
  Serious: Yes (Hospitalization)
  Sender: FDA-Public Use
  Company Number: 2005000030

PATIENT
  Age: 50 Year
  Sex: Female

DRUGS (7)
  1. RIFABUTIN (RIFABUTIN) [Suspect]
     Indication: ILL-DEFINED DISORDER
     Dosage: 450 MG (150 MG, TID), ORAL
     Route: 048
     Dates: start: 20040827, end: 20040916
  2. CIPROFLOXACIN [Concomitant]
  3. ETHAMBUTOL DIHYDROCHLORIDE (ETHAMBUTOL DIHYDROCHLORIDE) [Concomitant]
  4. CLARITHROMYCIN [Concomitant]
  5. KALETRA [Concomitant]
  6. STAVUDINE (STAVUDINE) [Concomitant]
  7. LAMIVUDINE (LAMIVUDINE) [Concomitant]

REACTIONS (4)
  - AGRANULOCYTOSIS [None]
  - CONDITION AGGRAVATED [None]
  - HAEMOGLOBIN DECREASED [None]
  - THROMBOCYTOPENIA [None]
